FAERS Safety Report 20676091 (Version 2)
Quarter: 2022Q2

REPORT INFORMATION
  Report Type: Spontaneous
  Country: PL (occurrence: PL)
  Receive Date: 20220405
  Receipt Date: 20220411
  Transmission Date: 20220720
  Serious: Yes (Hospitalization, Other)
  Sender: FDA-Public Use
  Company Number: PL-SA-2022SA023914

PATIENT
  Age: 45 Year
  Sex: Male

DRUGS (3)
  1. METHOTREXATE [Suspect]
     Active Substance: METHOTREXATE
     Indication: Rheumatoid arthritis
     Dosage: UNK
     Route: 065
  2. LEFLUNOMIDE [Suspect]
     Active Substance: LEFLUNOMIDE
     Indication: Rheumatoid arthritis
     Dosage: 20 MILLIGRAM, QD, 20 MG, QD
     Route: 065
  3. METHYLPREDNISOLONE [Concomitant]
     Active Substance: METHYLPREDNISOLONE
     Indication: Rheumatoid arthritis
     Dosage: UNK
     Route: 065

REACTIONS (9)
  - Haemoptysis [Recovering/Resolving]
  - Interstitial lung disease [Recovering/Resolving]
  - Dyspnoea [Recovering/Resolving]
  - Emphysema [Recovering/Resolving]
  - Pleural effusion [Recovering/Resolving]
  - Pulmonary fibrosis [Recovering/Resolving]
  - Gastrointestinal disorder [Unknown]
  - Drug ineffective [Unknown]
  - Off label use [Unknown]
